FAERS Safety Report 7824374-4 (Version None)
Quarter: 2011Q4

REPORT INFORMATION
  Report Type: 
  Country: None (occurrence: None)
  Receive Date: 20111018
  Receipt Date: 20111018
  Transmission Date: 20120403
  Serious: Yes (Other)
  Sender: FDA-Public Use
  Company Number: None

PATIENT
  Sex: Female
  Weight: 61.2356 kg

DRUGS (2)
  1. AMLODIPINE BESYLATE [Suspect]
     Indication: HYPERTENSION
     Dosage: 10MG ONCE DAILY AM ORAL
     Route: 048
     Dates: start: 20110811, end: 20110820
  2. AMLODIPINE BESYLATE [Suspect]
     Indication: ANGINA PECTORIS
     Dosage: 10MG ONCE DAILY AM ORAL
     Route: 048
     Dates: start: 20110811, end: 20110820

REACTIONS (4)
  - NAUSEA [None]
  - MIDDLE INSOMNIA [None]
  - VOMITING [None]
  - PRODUCT SUBSTITUTION ISSUE [None]
